FAERS Safety Report 6762617-9 (Version None)
Quarter: 2010Q2

REPORT INFORMATION
  Report Type: 
  Country: None (occurrence: None)
  Receive Date: 20100609
  Receipt Date: 20100514
  Transmission Date: 20101027
  Serious: Yes (Hospitalization, Disabling)
  Sender: FDA-Public Use
  Company Number: JP-MERCK-1005USA02582

PATIENT
  Age: 67 Year
  Sex: Female
  Weight: 42 kg

DRUGS (13)
  1. FOSAMAX [Suspect]
     Indication: OSTEOPOROSIS
     Dosage: DOSING FREQUENCY UNKNOWN
     Route: 048
     Dates: start: 20011112, end: 20060427
  2. ONEALFA [Concomitant]
     Route: 048
  3. NORVASC [Concomitant]
     Route: 048
  4. ASPIRIN [Concomitant]
     Route: 048
  5. ARTIST [Concomitant]
     Route: 048
  6. PLAVIX [Concomitant]
     Route: 048
  7. PEPCID [Concomitant]
     Route: 048
  8. LASIX [Concomitant]
     Route: 048
  9. MEVALOTIN [Concomitant]
     Route: 048
  10. FERROMIA [Concomitant]
     Route: 048
  11. ALDACTONE [Concomitant]
     Route: 048
  12. ACECOL [Concomitant]
     Route: 048
  13. WARFARIN POTASSIUM [Concomitant]
     Route: 048

REACTIONS (1)
  - OSTEOMYELITIS [None]
